FAERS Safety Report 6862674-5 (Version None)
Quarter: 2010Q2

REPORT INFORMATION
  Report Type: 
  Country: None (occurrence: None)
  Receive Date: 20100528
  Receipt Date: 20100426
  Transmission Date: 20101027
  Serious: No
  Sender: FDA-Public Use
  Company Number: 010994

PATIENT
  Age: 38 Year
  Sex: Female

DRUGS (2)
  1. LACOSAMIDE [Suspect]
     Indication: CONVULSION
     Dosage: (ORAL)
     Route: 048
     Dates: start: 20100112
  2. LYRICA [Concomitant]

REACTIONS (1)
  - WEIGHT INCREASED [None]
